FAERS Safety Report 4389379-7 (Version None)
Quarter: 2004Q3

REPORT INFORMATION
  Report Type: 
  Country: None (occurrence: None)
  Receive Date: 20040701
  Receipt Date: 20040701
  Transmission Date: 20050211
  Serious: No
  Sender: FDA-Public Use
  Company Number: None

PATIENT
  Sex: Male
  Weight: 110 kg

DRUGS (1)
  1. FENTANYL [Suspect]
     Indication: PAIN MANAGEMENT
     Dosage: 100 MCG EVERY 3 DA TRANSDERMAL
     Route: 062
     Dates: start: 20040406, end: 20040420

REACTIONS (6)
  - CONSTIPATION [None]
  - COORDINATION ABNORMAL [None]
  - GALLBLADDER PAIN [None]
  - INSOMNIA [None]
  - NERVOUS SYSTEM DISORDER [None]
  - VOMITING [None]
